FAERS Safety Report 14682196 (Version 1)
Quarter: 2018Q1

REPORT INFORMATION
  Report Type: Report from Study
  Country: US (occurrence: US)
  Receive Date: 20180326
  Receipt Date: 20180326
  Transmission Date: 20180509
  Serious: Yes (Other)
  Sender: FDA-Public Use
  Company Number: US-ALEXION PHARMACEUTICALS INC.-A201803279

PATIENT
  Age: 29 Year
  Sex: Male

DRUGS (1)
  1. SOLIRIS [Suspect]
     Active Substance: ECULIZUMAB
     Indication: PAROXYSMAL NOCTURNAL HAEMOGLOBINURIA
     Dosage: 900 MG, Q2W
     Route: 042
     Dates: start: 20180206, end: 20180306

REACTIONS (2)
  - Haemoglobin decreased [Recovered/Resolved]
  - Haematocrit decreased [Recovered/Resolved]

NARRATIVE: CASE EVENT DATE: 20180213
